FAERS Safety Report 9931108 (Version 2)
Quarter: 2014Q2

REPORT INFORMATION
  Report Type: Spontaneous
  Country: US (occurrence: US)
  Receive Date: 20140227
  Receipt Date: 20140417
  Transmission Date: 20141212
  Serious: Yes (Other)
  Sender: FDA-Public Use
  Company Number: US-AMGEN-USASP2014013423

PATIENT
  Age: 41 Year
  Sex: Male

DRUGS (6)
  1. EPOGEN [Suspect]
     Indication: ANAEMIA
     Dosage: 40000 UNIT, 2 TIMES/WK
     Route: 058
  2. OMEPRAZOLE [Concomitant]
     Dosage: UNK
  3. IRON SULFATE [Concomitant]
     Dosage: UNK
     Route: 048
  4. ASPIRIN [Concomitant]
     Dosage: UNK
  5. CALCITRIOL [Concomitant]
     Dosage: UNK
  6. HEPARIN [Concomitant]
     Dosage: UNK

REACTIONS (2)
  - Therapeutic response decreased [Unknown]
  - Haemoglobin decreased [Not Recovered/Not Resolved]
